FAERS Safety Report 9282820 (Version 1)
Quarter: 2013Q2

REPORT INFORMATION
  Report Type: Spontaneous
  Country: US (occurrence: US)
  Receive Date: 20130510
  Receipt Date: 20130510
  Transmission Date: 20140414
  Serious: Yes (Death)
  Sender: FDA-Public Use
  Company Number: US-PFIZER INC-2013144806

PATIENT
  Age: 48 Year
  Sex: Male

DRUGS (1)
  1. RAPAMUNE [Suspect]
     Indication: LUNG TRANSPLANT
     Dosage: 0.5 MG, 2X/DAY
     Dates: start: 20120723

REACTIONS (2)
  - Myocardial infarction [Fatal]
  - Off label use [Unknown]
